FAERS Safety Report 9101024 (Version 2)
Quarter: 2013Q3

REPORT INFORMATION
  Report Type: Report from Study
  Country: FR (occurrence: FR)
  Receive Date: 20130215
  Receipt Date: 20130805
  Transmission Date: 20140515
  Serious: Yes (Death, Hospitalization)
  Sender: FDA-Public Use
  Company Number: FR-CELGENEUS-056-21880-13020862

PATIENT
  Age: 61 Year
  Sex: Male

DRUGS (7)
  1. REVLIMID [Suspect]
     Indication: PLASMA CELL MYELOMA
     Route: 048
     Dates: start: 20120130, end: 20130203
  2. THALIDOMIDE [Suspect]
     Indication: PLASMA CELL MYELOMA
     Route: 048
     Dates: start: 201302
  3. BORTEZOMIB [Suspect]
     Indication: PLASMA CELL MYELOMA
     Route: 065
     Dates: start: 20120130, end: 20120927
  4. BORTEZOMIB [Suspect]
     Route: 065
     Dates: start: 201302
  5. DEXAMETHASONE [Suspect]
     Indication: PLASMA CELL MYELOMA
     Route: 065
     Dates: start: 20120130, end: 20120928
  6. DEXAMETHASONE [Suspect]
     Route: 065
     Dates: start: 201302
  7. PREVISCAN [Concomitant]
     Indication: PROPHYLAXIS
     Route: 065
     Dates: start: 201212

REACTIONS (1)
  - General physical health deterioration [Fatal]
